FAERS Safety Report 23219911 (Version 1)
Quarter: 2023Q4

REPORT INFORMATION
  Report Type: Spontaneous
  Country: BE (occurrence: BE)
  Receive Date: 20231122
  Receipt Date: 20231122
  Transmission Date: 20240110
  Serious: Yes (Other)
  Sender: FDA-Public Use
  Company Number: BE-JNJFOC-20231154550

PATIENT

DRUGS (3)
  1. TALVEY [Suspect]
     Active Substance: TALQUETAMAB-TGVS
     Indication: Plasma cell myeloma refractory
     Route: 065
     Dates: start: 20230928
  2. TALVEY [Suspect]
     Active Substance: TALQUETAMAB-TGVS
     Dosage: FIRST ADMINISTRATION OF CYCLE 2
     Route: 065
     Dates: start: 20231019
  3. TALVEY [Suspect]
     Active Substance: TALQUETAMAB-TGVS
     Dosage: SECOND ADMINISTRATION OF CYCLE 2
     Route: 065
     Dates: start: 20231103

REACTIONS (4)
  - Drug reaction with eosinophilia and systemic symptoms [Not Recovered/Not Resolved]
  - Cytokine release syndrome [Unknown]
  - Cerebral venous sinus thrombosis [Unknown]
  - Acute hepatic failure [Recovered/Resolved]
